FAERS Safety Report 9651168 (Version 5)
Quarter: 2013Q4

REPORT INFORMATION
  Report Type: Spontaneous
  Country: IT (occurrence: IT)
  Receive Date: 20131029
  Receipt Date: 20131223
  Transmission Date: 20140711
  Serious: Yes (Hospitalization)
  Sender: FDA-Public Use
  Company Number: IT-ROCHE-1292534

PATIENT
  Age: 74 Year
  Sex: Male
  Weight: 97 kg

DRUGS (23)
  1. MABTHERA [Suspect]
     Indication: B-CELL LYMPHOMA
     Route: 042
     Dates: start: 20130415, end: 20130528
  2. MABTHERA [Suspect]
     Route: 042
     Dates: start: 20130725, end: 20130816
  3. VINCRISTINA [Suspect]
     Indication: B-CELL LYMPHOMA
     Route: 040
     Dates: start: 20130416, end: 20130528
  4. VINCRISTINA [Suspect]
     Route: 040
     Dates: start: 20130725, end: 20130816
  5. DELTACORTENE [Suspect]
     Indication: B-CELL LYMPHOMA
     Route: 048
     Dates: start: 20130417, end: 20130601
  6. DELTACORTENE [Suspect]
     Route: 048
     Dates: start: 20130725, end: 20130820
  7. ADRIBLASTINA [Suspect]
     Indication: B-CELL LYMPHOMA
     Route: 040
     Dates: start: 20130416, end: 20130528
  8. ENDOXAN BAXTER [Suspect]
     Indication: B-CELL LYMPHOMA
     Route: 040
     Dates: start: 20130416, end: 20130528
  9. ENDOXAN BAXTER [Suspect]
     Route: 040
     Dates: start: 20130725, end: 20130816
  10. GLIBOMET [Concomitant]
     Indication: TYPE 2 DIABETES MELLITUS
     Route: 048
     Dates: start: 20130327, end: 20130628
  11. ACICLIN [Concomitant]
     Indication: ANTIVIRAL PROPHYLAXIS
     Route: 048
     Dates: start: 20130528, end: 20130828
  12. PEGFILGRASTIM [Concomitant]
     Indication: FEBRILE NEUTROPENIA
     Route: 058
     Dates: start: 20130416, end: 20130529
  13. ALLOPURINOL [Concomitant]
     Indication: HYPERURICAEMIA
     Route: 048
     Dates: start: 20130327, end: 20130828
  14. PANTORC [Concomitant]
     Indication: GASTROOESOPHAGEAL REFLUX DISEASE
     Route: 048
     Dates: start: 20130327, end: 20130828
  15. NORVASC [Concomitant]
     Indication: HYPERTENSION
     Route: 048
     Dates: start: 20130327, end: 20130828
  16. TENORMIN [Concomitant]
     Indication: HYPERTENSION
     Route: 048
     Dates: start: 20130327, end: 20130828
  17. LASIX [Concomitant]
     Route: 048
     Dates: start: 20130327, end: 20130628
  18. LASIX [Concomitant]
     Route: 048
     Dates: start: 20130629, end: 20130828
  19. LANTUS [Concomitant]
     Indication: TYPE 2 DIABETES MELLITUS
     Route: 058
     Dates: start: 20130628, end: 20130828
  20. LORAZEPAM [Concomitant]
     Indication: INSOMNIA
     Route: 048
     Dates: start: 20130629, end: 20130828
  21. CLEXANE [Concomitant]
     Indication: THROMBOSIS PROPHYLAXIS
     Route: 058
     Dates: start: 20130508, end: 20130628
  22. LANTUS [Concomitant]
     Indication: TYPE 2 DIABETES MELLITUS
     Route: 058
     Dates: start: 20130628, end: 20130826
  23. GLUCOPHAGE [Concomitant]
     Indication: TYPE 2 DIABETES MELLITUS
     Route: 048
     Dates: start: 20130628, end: 20130826

REACTIONS (6)
  - Acute respiratory failure [Recovered/Resolved]
  - Febrile neutropenia [Recovered/Resolved]
  - Pneumonitis [Recovered/Resolved]
  - Sepsis [Recovered/Resolved]
  - Anaemia [Recovered/Resolved]
  - Pneumonia [Recovered/Resolved]
